FAERS Safety Report 13741443 (Version 1)
Quarter: 2017Q3

REPORT INFORMATION
  Report Type: Spontaneous
  Country: US (occurrence: US)
  Receive Date: 20170711
  Receipt Date: 20170711
  Transmission Date: 20171127
  Serious: Yes (Life-Threatening, Hospitalization)
  Sender: FDA-Public Use
  Company Number: None

PATIENT
  Age: 69 Year
  Sex: Female
  Weight: 54.03 kg

DRUGS (4)
  1. MULTI VITAMIN [Concomitant]
     Active Substance: VITAMINS
  2. PROBIOTIC [Concomitant]
     Active Substance: PROBIOTICS NOS
  3. BIOTIN [Concomitant]
     Active Substance: BIOTIN
  4. FORTEO [Suspect]
     Active Substance: TERIPARATIDE
     Indication: OSTEOPOROSIS
     Dosage: 20MCG PER DOSE INJECTION AUTO-DOSE 1 X PER DAY INJECTION INTO FATTY TISSUE
     Route: 058
     Dates: start: 20170605, end: 20170618

REACTIONS (4)
  - Headache [None]
  - Dark circles under eyes [None]
  - Blood calcium increased [None]
  - Asthenia [None]

NARRATIVE: CASE EVENT DATE: 20170618
